FAERS Safety Report 23914671 (Version 1)
Quarter: 2024Q2

REPORT INFORMATION
  Report Type: Spontaneous
  Country: JP (occurrence: JP)
  Receive Date: 20240529
  Receipt Date: 20240529
  Transmission Date: 20240716
  Serious: Yes (Hospitalization)
  Sender: FDA-Public Use
  Company Number: JP-CHUGAI-A2017043601ROCHE

PATIENT
  Age: 8 Decade
  Sex: Male

DRUGS (2)
  1. CAPECITABINE [Suspect]
     Active Substance: CAPECITABINE
     Indication: Gastric cancer
     Dosage: DOSAGE IS UNCERTAIN.
     Route: 048
  2. OXALIPLATIN [Concomitant]
     Active Substance: OXALIPLATIN
     Indication: Gastric cancer
     Dosage: DOSAGE IS UNCERTAIN.
     Route: 042

REACTIONS (3)
  - Liver abscess [Unknown]
  - Duodenal stump fistula [Unknown]
  - Abdominal abscess [Unknown]
